FAERS Safety Report 9550308 (Version 1)
Quarter: 2013Q3

REPORT INFORMATION
  Report Type: Spontaneous
  Country: US (occurrence: US)
  Receive Date: 20130924
  Receipt Date: 20130924
  Transmission Date: 20140515
  Serious: No
  Sender: FDA-Public Use
  Company Number: US-SANOFI-AVENTIS-2013SA085157

PATIENT
  Age: 44 Year
  Sex: Female

DRUGS (3)
  1. AUBAGIO [Suspect]
     Route: 065
  2. AMPYRA [Suspect]
     Route: 065
  3. COPAXONE [Concomitant]

REACTIONS (3)
  - Memory impairment [Unknown]
  - Alopecia [Unknown]
  - Multiple sclerosis relapse [Unknown]
